FAERS Safety Report 7995616-X (Version None)
Quarter: 2011Q4

REPORT INFORMATION
  Report Type: 
  Country: None (occurrence: None)
  Receive Date: 20111220
  Receipt Date: 20111212
  Transmission Date: 20120403
  Serious: Yes (Other)
  Sender: FDA-Public Use
  Company Number: US-BAYER-2011-120159

PATIENT
  Age: 55 Year
  Sex: Female
  Weight: 63 kg

DRUGS (1)
  1. ONE-A-DAY WOMEN'S 50 + ADVANTAGE [Suspect]
     Dosage: 1 DF, QD
     Route: 048
     Dates: start: 20111001

REACTIONS (5)
  - FOREIGN BODY [None]
  - VOMITING [None]
  - RETCHING [None]
  - THROAT IRRITATION [None]
  - CHOKING [None]
